FAERS Safety Report 10217457 (Version 5)
Quarter: 2014Q3

REPORT INFORMATION
  Report Type: Report from Study
  Country: US (occurrence: US)
  Receive Date: 20140604
  Receipt Date: 20140902
  Transmission Date: 20150326
  Serious: Yes (Hospitalization)
  Sender: FDA-Public Use
  Company Number: US-PFIZER INC-2014110572

PATIENT
  Age: 59 Year
  Sex: Male
  Weight: 88.6 kg

DRUGS (16)
  1. ARIPIPRAZOLE [Concomitant]
     Active Substance: ARIPIPRAZOLE
  2. TRAMADOL HYDROCHLORIDE. [Concomitant]
     Active Substance: TRAMADOL HYDROCHLORIDE
  3. IRINOTECAN HCL [Suspect]
     Active Substance: IRINOTECAN HYDROCHLORIDE
     Indication: PANCREATIC CARCINOMA
     Dosage: 358 MG, EVERY 2 WEEKS
     Route: 042
     Dates: start: 20140407, end: 20140407
  4. ASPIRIN. [Concomitant]
     Active Substance: ASPIRIN
  5. PF-04136309 [Suspect]
     Active Substance: INVESTIGATIONAL PRODUCT
     Indication: PANCREATIC CARCINOMA
     Dosage: 500 MG, TWICE DAILY CONTINUOUSLY
     Route: 048
     Dates: start: 20140407, end: 20140417
  6. FLUOROURACIL. [Suspect]
     Active Substance: FLUOROURACIL
     Dosage: CIVI: 4776 MG, EVERY 2 WEEKS
     Route: 042
     Dates: start: 20140407, end: 20140407
  7. GLIMEPIRIDE. [Concomitant]
     Active Substance: GLIMEPIRIDE
  8. LEUCOVORIN [Suspect]
     Active Substance: LEUCOVORIN
     Indication: PANCREATIC CARCINOMA
     Dosage: 796 MG, EVERY 2 WEEKS
     Route: 042
     Dates: start: 20140407, end: 20140407
  9. PAXIL [Concomitant]
     Active Substance: PAROXETINE HYDROCHLORIDE
  10. BUSPIRONE [Concomitant]
     Active Substance: BUSPIRONE HYDROCHLORIDE
  11. TRAZODONE HYDROCHLORIDE. [Concomitant]
     Active Substance: TRAZODONE HYDROCHLORIDE
  12. OXALIPLATIN. [Suspect]
     Active Substance: OXALIPLATIN
     Indication: PANCREATIC CARCINOMA
     Dosage: 169 MG, EVERY 2 WEEKS
     Route: 042
     Dates: start: 20140407, end: 20140407
  13. FLOMAX [Concomitant]
     Active Substance: TAMSULOSIN HYDROCHLORIDE
  14. BENZTROPINE MESYLATE. [Concomitant]
     Active Substance: BENZTROPINE MESYLATE
  15. OMEPRAZOLE. [Concomitant]
     Active Substance: OMEPRAZOLE
  16. FLUOROURACIL. [Suspect]
     Active Substance: FLUOROURACIL
     Indication: PANCREATIC CARCINOMA
     Dosage: 796 MG, EVERY 2 WEEKS
     Route: 040
     Dates: start: 20140407, end: 20140407

REACTIONS (1)
  - Muscular weakness [Recovered/Resolved]

NARRATIVE: CASE EVENT DATE: 20140417
